FAERS Safety Report 14407052 (Version 1)
Quarter: 2018Q1

REPORT INFORMATION
  Report Type: Spontaneous
  Country: US (occurrence: US)
  Receive Date: 20180118
  Receipt Date: 20180118
  Transmission Date: 20180509
  Serious: No
  Sender: FDA-Public Use
  Company Number: US-B. BRAUN MEDICAL INC.-2040291

PATIENT
  Age: 28 Year
  Sex: Female

DRUGS (11)
  1. CEFAZOLIN SODIUM. [Suspect]
     Active Substance: CEFAZOLIN SODIUM
  2. BENADRYL [Concomitant]
     Active Substance: DIPHENHYDRAMINE HYDROCHLORIDE
  3. DECADRON [Concomitant]
     Active Substance: DEXAMETHASONE
     Route: 042
  4. PEPCID [Concomitant]
     Active Substance: FAMOTIDINE
     Route: 042
  5. LIDOCAINE. [Concomitant]
     Active Substance: LIDOCAINE
     Route: 042
  6. PROPOFOL. [Concomitant]
     Active Substance: PROPOFOL
     Route: 042
  7. FENTANYL. [Concomitant]
     Active Substance: FENTANYL
     Route: 042
  8. LACTATED RINGERS SOLUTION [Concomitant]
     Active Substance: CALCIUM CHLORIDE\POTASSIUM CHLORIDE\SODIUM CHLORIDE\SODIUM LACTATE
     Route: 042
  9. EPINEPHRINE. [Concomitant]
     Active Substance: EPINEPHRINE
  10. MIDAZOLAM [Concomitant]
     Active Substance: MIDAZOLAM HYDROCHLORIDE
     Route: 042
  11. ZEMURON [Concomitant]
     Active Substance: ROCURONIUM BROMIDE
     Route: 042

REACTIONS (2)
  - Flushing [Recovered/Resolved]
  - Tachycardia [Recovered/Resolved]
